FAERS Safety Report 9201667 (Version 2)
Quarter: 2013Q2

REPORT INFORMATION
  Report Type: Spontaneous
  Country: AU (occurrence: AU)
  Receive Date: 20130401
  Receipt Date: 20130408
  Transmission Date: 20140414
  Serious: Yes (Other)
  Sender: FDA-Public Use
  Company Number: PHHY2013AU030093

PATIENT
  Age: 70 Year
  Sex: Male
  Weight: 72 kg

DRUGS (3)
  1. EVEROLIMUS [Suspect]
     Dosage: UNK UKN, UNK
  2. PREDNISONE [Concomitant]
     Dosage: 10 UKN, UNK
     Route: 048
     Dates: start: 20120625, end: 20130228
  3. MYCOPHENOLATE [Concomitant]
     Dosage: UNK UKN, UNK
     Route: 048

REACTIONS (4)
  - Fanconi syndrome [Not Recovered/Not Resolved]
  - Hypophosphataemia [Unknown]
  - Acidosis [Unknown]
  - Transplant rejection [Unknown]
